FAERS Safety Report 16431286 (Version 4)
Quarter: 2019Q4

REPORT INFORMATION
  Report Type: Report from Study
  Country: DE (occurrence: DE)
  Receive Date: 20190614
  Receipt Date: 20191216
  Transmission Date: 20200122
  Serious: Yes (Other)
  Sender: FDA-Public Use
  Company Number: DE-ROCHE-2255302

PATIENT
  Age: 45 Year
  Sex: Female
  Weight: 84 kg

DRUGS (7)
  1. OCRELIZUMAB. [Suspect]
     Active Substance: OCRELIZUMAB
     Route: 042
     Dates: start: 20180911
  2. FLUOXETIN [Concomitant]
     Active Substance: FLUOXETINE HYDROCHLORIDE
     Indication: MULTIPLE SCLEROSIS
     Route: 048
     Dates: start: 20150821
  3. AMANTADIN [AMANTADINE] [Concomitant]
     Active Substance: AMANTADINE
     Indication: FATIGUE
     Dosage: DEFINITION OF THE INTERVAL: AS REQUIRED
     Route: 048
     Dates: start: 20190613
  4. INFLUVAC TETRA [Concomitant]
     Active Substance: INFLUENZA VIRUS VACCINE QUADRIVALENT TYPE A+B
     Indication: PROPHYLAXIS
     Route: 030
     Dates: start: 20181115, end: 20181115
  5. OCRELIZUMAB. [Suspect]
     Active Substance: OCRELIZUMAB
     Indication: MULTIPLE SCLEROSIS
     Route: 042
     Dates: start: 20180820
  6. OCRELIZUMAB. [Suspect]
     Active Substance: OCRELIZUMAB
     Route: 042
     Dates: start: 20190325
  7. BORNAPRINE [Concomitant]
     Active Substance: BORNAPRINE
     Indication: HYPERHIDROSIS
     Dosage: DEFINITION OF THE INTERVAL: AS REQUIRED
     Route: 048
     Dates: start: 20171020

REACTIONS (12)
  - Herpes zoster [Recovered/Resolved]
  - Infusion related reaction [Recovered/Resolved]
  - Inappropriate schedule of product administration [Unknown]
  - Urinary tract infection [Recovered/Resolved]
  - Blood pressure increased [Recovered/Resolved]
  - Lymphopenia [Recovered/Resolved]
  - C-reactive protein increased [Unknown]
  - Eosinophil count increased [Recovered/Resolved]
  - Blood immunoglobulin M decreased [Unknown]
  - Nasopharyngitis [Recovered/Resolved]
  - Blood pressure diastolic increased [Unknown]
  - Urinary tract infection [Recovered/Resolved]

NARRATIVE: CASE EVENT DATE: 20180820
